FAERS Safety Report 8794812 (Version 2)
Quarter: 2015Q2

REPORT INFORMATION
  Report Type: Report from Study
  Country: US (occurrence: US)
  Receive Date: 20120917
  Receipt Date: 20150407
  Transmission Date: 20150821
  Serious: Yes (Death, Hospitalization)
  Sender: FDA-Public Use
  Company Number: US-ROCHE-1128328

PATIENT
  Sex: Female
  Weight: 113.5 kg

DRUGS (19)
  1. CARBOPLATIN. [Concomitant]
     Active Substance: CARBOPLATIN
     Route: 042
  2. COMPAZINE [Concomitant]
     Active Substance: PROCHLORPERAZINE MALEATE
  3. COUMADIN [Concomitant]
     Active Substance: WARFARIN SODIUM
     Route: 048
  4. AVASTIN [Suspect]
     Active Substance: BEVACIZUMAB
     Indication: BREAST CANCER FEMALE
     Route: 042
     Dates: start: 20051219
  5. EFFEXOR [Concomitant]
     Active Substance: VENLAFAXINE HYDROCHLORIDE
     Route: 042
  6. KYTRIL [Concomitant]
     Active Substance: GRANISETRON HYDROCHLORIDE
     Route: 042
  7. DECADRON [Concomitant]
     Active Substance: DEXAMETHASONE
     Route: 042
  8. TYLENOL [Concomitant]
     Active Substance: ACETAMINOPHEN
  9. LOVENOX [Concomitant]
     Active Substance: ENOXAPARIN SODIUM
     Route: 042
  10. XELODA [Concomitant]
     Active Substance: CAPECITABINE
     Route: 065
  11. NAVELBINE [Concomitant]
     Active Substance: VINORELBINE TARTRATE
     Route: 042
  12. GEMZAR [Concomitant]
     Active Substance: GEMCITABINE HYDROCHLORIDE
     Route: 042
  13. COREG [Concomitant]
     Active Substance: CARVEDILOL
     Route: 065
  14. PEPCID [Concomitant]
     Active Substance: FAMOTIDINE
     Route: 065
  15. ARANESP [Concomitant]
     Active Substance: DARBEPOETIN ALFA
     Route: 058
  16. LIPITOR [Concomitant]
     Active Substance: ATORVASTATIN CALCIUM
  17. ZOFRAN [Concomitant]
     Active Substance: ONDANSETRON HYDROCHLORIDE
     Route: 065
  18. LISINOPRIL. [Concomitant]
     Active Substance: LISINOPRIL
     Route: 065
  19. FAMOTIDINE. [Concomitant]
     Active Substance: FAMOTIDINE
     Route: 065

REACTIONS (23)
  - Hypophagia [Unknown]
  - Chest pain [Unknown]
  - Swelling [Unknown]
  - Dizziness postural [Unknown]
  - Headache [Unknown]
  - Fatigue [Unknown]
  - Deep vein thrombosis [Unknown]
  - Hypersomnia [Unknown]
  - Urticaria [Unknown]
  - Angina pectoris [Unknown]
  - Off label use [Unknown]
  - Death [Fatal]
  - Asthenia [Recovering/Resolving]
  - Lymphadenopathy [Recovered/Resolved]
  - Depression [Unknown]
  - Nausea [Unknown]
  - Tachycardia [Unknown]
  - Vomiting [Unknown]
  - Decreased activity [Recovering/Resolving]
  - Pulmonary embolism [Unknown]
  - Epistaxis [Unknown]
  - Syncope [Unknown]
  - Blood pressure increased [Unknown]
